FAERS Safety Report 20699046 (Version 4)
Quarter: 2022Q2

REPORT INFORMATION
  Report Type: Report from Study
  Country: US (occurrence: US)
  Receive Date: 20220412
  Receipt Date: 20220603
  Transmission Date: 20220720
  Serious: Yes (Hospitalization)
  Sender: FDA-Public Use
  Company Number: US-NOVARTISPH-NVSC2022US081722

PATIENT
  Age: 84 Year
  Sex: Male

DRUGS (1)
  1. ENTRESTO [Suspect]
     Active Substance: SACUBITRIL\VALSARTAN
     Indication: Cardiac failure
     Dosage: 1 DOSAGE FORM, BID (24-26 MG)
     Route: 048
     Dates: start: 20201106, end: 20220425

REACTIONS (5)
  - Myocardial infarction [Recovered/Resolved]
  - Cardiac failure [Not Recovered/Not Resolved]
  - Product dose omission issue [Recovered/Resolved]
  - Acute myocardial infarction [Unknown]
  - Bundle branch block left [Unknown]

NARRATIVE: CASE EVENT DATE: 20220315
